FAERS Safety Report 19189970 (Version 21)
Quarter: 2024Q4

REPORT INFORMATION
  Report Type: Report from Study
  Country: CO (occurrence: CO)
  Receive Date: 20210428
  Receipt Date: 20241009
  Transmission Date: 20250115
  Serious: Yes (Hospitalization, Other)
  Sender: TAKEDA
  Company Number: CO-TAKEDA-2020TUS060283

PATIENT
  Age: 8 Year
  Sex: Female
  Weight: 24.94 kg

DRUGS (4)
  1. HUMAN IMMUNOGLOBULIN G\HYALURONIDASE RECOMBINANT HUMAN [Suspect]
     Active Substance: HUMAN IMMUNOGLOBULIN G\HYALURONIDASE (HUMAN RECOMBINANT)
     Indication: Primary immunodeficiency syndrome
     Dosage: UNK
     Route: 065
     Dates: start: 20200801
  2. HUMAN IMMUNOGLOBULIN G\HYALURONIDASE RECOMBINANT HUMAN [Suspect]
     Active Substance: HUMAN IMMUNOGLOBULIN G\HYALURONIDASE (HUMAN RECOMBINANT)
     Dosage: 15 GRAM, MONTHLY
     Route: 058
     Dates: start: 20210327
  3. HUMAN IMMUNOGLOBULIN G\HYALURONIDASE RECOMBINANT HUMAN [Suspect]
     Active Substance: HUMAN IMMUNOGLOBULIN G\HYALURONIDASE (HUMAN RECOMBINANT)
     Dosage: 20 GRAM, MONTHLY
     Route: 058
  4. HUMAN IMMUNOGLOBULIN G\HYALURONIDASE RECOMBINANT HUMAN [Suspect]
     Active Substance: HUMAN IMMUNOGLOBULIN G\HYALURONIDASE (HUMAN RECOMBINANT)
     Dosage: 10 GRAM, MONTHLY
     Route: 058

REACTIONS (30)
  - Blood creatinine increased [Unknown]
  - Haemoglobin abnormal [Recovering/Resolving]
  - Protein urine present [Recovering/Resolving]
  - Pneumonia [Unknown]
  - Eyelid oedema [Recovering/Resolving]
  - Influenza [Recovered/Resolved]
  - COVID-19 [Unknown]
  - Diarrhoea [Recovered/Resolved]
  - Back pain [Recovering/Resolving]
  - Influenza like illness [Unknown]
  - Vomiting [Recovered/Resolved]
  - Dyspnoea [Unknown]
  - Treatment noncompliance [Unknown]
  - Pallor [Unknown]
  - Nasal congestion [Not Recovered/Not Resolved]
  - Abdominal pain [Recovering/Resolving]
  - Chills [Recovering/Resolving]
  - Abdominal distension [Unknown]
  - Weight increased [Unknown]
  - Weight decreased [Recovering/Resolving]
  - Body height increased [Recovering/Resolving]
  - Off label use [Unknown]
  - Product availability issue [Unknown]
  - Administration site discharge [Unknown]
  - Insurance issue [Unknown]
  - Product use issue [Unknown]
  - Pain [Recovering/Resolving]
  - Cough [Recovering/Resolving]
  - Asthenia [Recovering/Resolving]
  - Pyrexia [Recovered/Resolved]

NARRATIVE: CASE EVENT DATE: 20200801
